FAERS Safety Report 5872701-X (Version None)
Quarter: 2008Q3

REPORT INFORMATION
  Report Type: 
  Country: None (occurrence: None)
  Receive Date: 20080905
  Receipt Date: 20080826
  Transmission Date: 20090109
  Serious: Yes (Other)
  Sender: FDA-Public Use
  Company Number: CO-PFIZER INC-2008073960

PATIENT
  Sex: Female

DRUGS (1)
  1. CHANTIX [Suspect]

REACTIONS (1)
  - BASEDOW'S DISEASE [None]
